FAERS Safety Report 12985020 (Version 2)
Quarter: 2016Q4

REPORT INFORMATION
  Report Type: Report from Study
  Country: IT (occurrence: IT)
  Receive Date: 20161129
  Receipt Date: 20161219
  Transmission Date: 20170207
  Serious: Yes (Hospitalization)
  Sender: FDA-Public Use
  Company Number: IT-TEVA-714892ACC

PATIENT
  Age: 57 Year
  Sex: Male

DRUGS (4)
  1. LORAZEPAM ABC - ABC FARMACEUTICI S.P.A. [Suspect]
     Active Substance: LORAZEPAM
     Indication: DRUG ABUSE
     Dosage: TOTAL
     Route: 048
     Dates: start: 20150815, end: 20150815
  2. SINTROM [Suspect]
     Active Substance: ACENOCOUMAROL
     Indication: DRUG ABUSE
     Dosage: TOTAL
     Route: 048
     Dates: start: 20150815, end: 20150815
  3. FLUOXETINA - GET S.R.L. [Suspect]
     Active Substance: FLUOXETINE HYDROCHLORIDE
     Indication: DRUG ABUSE
     Dosage: TOTAL
     Route: 048
     Dates: start: 20150815, end: 20150815
  4. CARBOLITHIUM - TEVA ITALIA S.R.L. [Suspect]
     Active Substance: LITHIUM CARBONATE
     Indication: INSOMNIA
     Dosage: 1 DF TOTAL
     Route: 048
     Dates: start: 20150814, end: 20150814

REACTIONS (5)
  - Psychomotor retardation [Recovering/Resolving]
  - Sopor [Recovering/Resolving]
  - Drug abuse [Recovering/Resolving]
  - Confusional state [Recovering/Resolving]
  - Miosis [Recovering/Resolving]

NARRATIVE: CASE EVENT DATE: 20150815
